FAERS Safety Report 4631404-X (Version None)
Quarter: 2005Q2

REPORT INFORMATION
  Report Type: 
  Country: None (occurrence: None)
  Receive Date: 20050407
  Receipt Date: 20050325
  Transmission Date: 20051028
  Serious: Yes (Hospitalization, Other)
  Sender: FDA-Public Use
  Company Number: 2005049506

PATIENT
  Age: 72 Year
  Sex: Female
  Weight: 42.8649 kg

DRUGS (11)
  1. DETROL LA [Suspect]
     Indication: HYPERTONIC BLADDER
     Dosage: 4 MG (4 MG, 1 IN 1 D), ORAL
     Route: 048
     Dates: start: 20040101, end: 20050301
  2. MONTELUKAST (MONTELUKAST) [Concomitant]
  3. LEVTHYROXINE SODIUM (LEVOTHYROXINE SODIUM) [Concomitant]
  4. LORAZEPAM [Concomitant]
  5. BUPROPION HYDROCHLORIDE (BUPROPION HYDROCHLOLRIDE) [Concomitant]
  6. PANTOPRAZOLE (PANTOPRAZOLE) [Concomitant]
  7. TEGASEROD (TEGASEROD) [Concomitant]
  8. CALCITONIN, SALMON (CALCITONIN, SALMON) [Concomitant]
  9. DIPHENHYDRAMINE HCL [Concomitant]
  10. ACETAMINOPHEN [Concomitant]
  11. METHYLCELLULOSE (METHYLCELLULOSE) [Concomitant]

REACTIONS (4)
  - CONDITION AGGRAVATED [None]
  - DRUG INEFFECTIVE [None]
  - HYPERTONIC BLADDER [None]
  - IRRITABLE BOWEL SYNDROME [None]
